FAERS Safety Report 8055140-5 (Version None)
Quarter: 2012Q1

REPORT INFORMATION
  Report Type: 
  Country: None (occurrence: None)
  Receive Date: 20120119
  Receipt Date: 20120113
  Transmission Date: 20120608
  Serious: No
  Sender: FDA-Public Use
  Company Number: US-CELGENEUS-163-21880-11122685

PATIENT
  Sex: Female
  Weight: 63 kg

DRUGS (6)
  1. REVLIMID [Suspect]
     Indication: MULTIPLE MYELOMA
     Dosage: 25 MILLIGRAM
     Route: 048
     Dates: start: 20101109, end: 20111212
  2. SIMVASTATIN [Concomitant]
     Dosage: 20 MILLIGRAM
     Route: 065
  3. ALPRAZOLAM [Concomitant]
     Dosage: .5 MILLIGRAM
     Route: 065
  4. NEXIUM [Concomitant]
     Dosage: 20 MILLIGRAM
     Route: 048
  5. LISINOPRIL [Concomitant]
     Route: 065
  6. ASTELIN [Concomitant]
     Dosage: 137 MICROGRAM
     Route: 065

REACTIONS (2)
  - IMMUNOGLOBULINS DECREASED [None]
  - NO THERAPEUTIC RESPONSE [None]
